FAERS Safety Report 4976069-2 (Version None)
Quarter: 2006Q2

REPORT INFORMATION
  Report Type: 
  Country: None (occurrence: None)
  Receive Date: 20060411
  Receipt Date: 20060331
  Transmission Date: 20061013
  Serious: Yes (Other)
  Sender: FDA-Public Use
  Company Number: 2006046503

PATIENT
  Age: 29 Year
  Sex: Female

DRUGS (4)
  1. GEODON [Suspect]
     Indication: BIPOLAR DISORDER
     Dosage: 160 MG (80 MG, BID INTERVAL: EVERY DAY)
  2. XANAX [Suspect]
     Indication: ILL-DEFINED DISORDER
  3. LAMICTAL [Concomitant]
  4. KLONOPIN [Concomitant]

REACTIONS (2)
  - CAESAREAN SECTION [None]
  - DRUG EXPOSURE DURING PREGNANCY [None]
